FAERS Safety Report 24750944 (Version 1)
Quarter: 2024Q4

REPORT INFORMATION
  Report Type: Spontaneous
  Country: CN (occurrence: CN)
  Receive Date: 20241219
  Receipt Date: 20241219
  Transmission Date: 20250114
  Serious: Yes (Hospitalization)
  Sender: BEIGENE
  Company Number: CN-BEIGENE-BGN-2024-020258

PATIENT

DRUGS (4)
  1. TISLELIZUMAB [Suspect]
     Active Substance: TISLELIZUMAB
     Indication: Small intestine carcinoma
     Dosage: 200 MILLIGRAM
     Route: 041
     Dates: start: 20241122
  2. LEUCOVORIN CALCIUM [Suspect]
     Active Substance: LEUCOVORIN CALCIUM
     Indication: Small intestine carcinoma
     Dosage: 0.2 GRAM
     Route: 041
     Dates: start: 20241117
  3. IRINOTECAN HYDROCHLORIDE [Suspect]
     Active Substance: IRINOTECAN HYDROCHLORIDE
     Indication: Small intestine carcinoma
     Dosage: 200 MILLIGRAM
     Route: 041
     Dates: start: 20241117
  4. FLUOROURACIL [Concomitant]
     Active Substance: FLUOROURACIL
     Indication: Small intestine carcinoma

REACTIONS (1)
  - Hepatic function abnormal [Recovering/Resolving]

NARRATIVE: CASE EVENT DATE: 20241124
